FAERS Safety Report 7211456-3 (Version None)
Quarter: 2011Q1

REPORT INFORMATION
  Report Type: 
  Country: None (occurrence: None)
  Receive Date: 20110105
  Receipt Date: 20101217
  Transmission Date: 20110831
  Serious: No
  Sender: FDA-Public Use
  Company Number: US-B.I. PHARMACEUTICALS,INC./RIDGEFIELD-2010-BP-15117BP

PATIENT
  Age: 60 Year
  Sex: Male

DRUGS (5)
  1. TESTOSTERONE [Concomitant]
  2. BENICAR [Concomitant]
     Indication: HYPERTENSION
  3. PRADAXA [Suspect]
     Indication: ATRIAL FIBRILLATION
     Dosage: 300 MG
     Route: 048
     Dates: start: 20101216
  4. MULTIVITAMIN [Concomitant]
     Indication: SUPPLEMENTATION THERAPY
  5. ALLOPURINOL [Concomitant]
     Indication: GOUT

REACTIONS (1)
  - DIZZINESS [None]
